FAERS Safety Report 10982894 (Version 1)
Quarter: 2015Q2

REPORT INFORMATION
  Report Type: Spontaneous
  Country: CN (occurrence: CN)
  Receive Date: 20150403
  Receipt Date: 20150403
  Transmission Date: 20150821
  Serious: Yes (Hospitalization)
  Sender: FDA-Public Use
  Company Number: CN-ASTRAZENECA-2015SE29442

PATIENT
  Age: 81 Year
  Sex: Female

DRUGS (3)
  1. BETALOC ZOK [Suspect]
     Active Substance: METOPROLOL SUCCINATE
     Route: 048
     Dates: start: 201411, end: 20150129
  2. ASPIRIN. [Concomitant]
     Active Substance: ASPIRIN
     Dosage: NON-AZ PRODUCT
  3. LOSARTAN POTASSIUM. [Concomitant]
     Active Substance: LOSARTAN POTASSIUM
     Dates: end: 20150127

REACTIONS (10)
  - Cupulolithiasis [Unknown]
  - Atrioventricular block first degree [Unknown]
  - Sinus arrest [Unknown]
  - Supraventricular extrasystoles [Unknown]
  - Cardiac failure chronic [Unknown]
  - Cerebral disorder [Unknown]
  - Arteriosclerosis coronary artery [Unknown]
  - Electrocardiogram RR interval prolonged [Recovered/Resolved]
  - Sinus bradycardia [Unknown]
  - Sinus arrhythmia [Unknown]

NARRATIVE: CASE EVENT DATE: 20150126
